FAERS Safety Report 8120824-7 (Version None)
Quarter: 2012Q1

REPORT INFORMATION
  Report Type: 
  Country: None (occurrence: None)
  Receive Date: 20120208
  Receipt Date: 20120126
  Transmission Date: 20120608
  Serious: Yes (Other)
  Sender: FDA-Public Use
  Company Number: BR-AMGEN-BRASP2012006714

PATIENT
  Age: 59 Year
  Sex: Female

DRUGS (4)
  1. FLOTAC                             /00372301/ [Concomitant]
     Indication: PAIN
     Dosage: 70 MG, AS NEEDED
  2. ENBREL [Suspect]
     Indication: RHEUMATOID ARTHRITIS
     Dosage: 50 MG, ONCE WEEKLY
     Route: 058
     Dates: start: 20111001
  3. DILTIAZEM HYDROCHLORIDE [Concomitant]
     Indication: ARRHYTHMIA
     Dosage: 60 MG, 2X/DAY
  4. PROPAFENONE HYDROCHLORIDE [Concomitant]
     Indication: ARRHYTHMIA
     Dosage: 300 MG, 1X/DAY

REACTIONS (2)
  - INJECTION SITE PAIN [None]
  - ARTHROPATHY [None]
